FAERS Safety Report 25578887 (Version 1)
Quarter: 2025Q3

REPORT INFORMATION
  Report Type: Spontaneous
  Country: GB (occurrence: GB)
  Receive Date: 20250718
  Receipt Date: 20250718
  Transmission Date: 20251020
  Serious: Yes (Hospitalization)
  Sender: ELI LILLY AND COMPANY
  Company Number: GB-ELI_LILLY_AND_COMPANY-GB202507005469

PATIENT
  Age: 64 Year
  Sex: Male

DRUGS (1)
  1. MOUNJARO [Suspect]
     Active Substance: TIRZEPATIDE
     Indication: Product used for unknown indication
     Route: 065

REACTIONS (7)
  - Gait disturbance [Unknown]
  - Hallucination [Unknown]
  - Speech disorder [Unknown]
  - Pain in extremity [Unknown]
  - Appendix disorder [Unknown]
  - Dyspnoea [Unknown]
  - Gastrointestinal disorder [Unknown]
